FAERS Safety Report 15996877 (Version 2)
Quarter: 2019Q1

REPORT INFORMATION
  Report Type: Report from Study
  Country: CO (occurrence: CO)
  Receive Date: 20190222
  Receipt Date: 20190305
  Transmission Date: 20190418
  Serious: Yes (Death, Hospitalization)
  Sender: FDA-Public Use
  Company Number: CO-SA-2019SA049272

PATIENT
  Age: 73 Year
  Sex: Female

DRUGS (1)
  1. INSULIN GLARGINE [Suspect]
     Active Substance: INSULIN GLARGINE
     Indication: TYPE 2 DIABETES MELLITUS
     Dosage: 40 IU, QD
     Route: 058
     Dates: start: 201805, end: 20190128

REACTIONS (2)
  - Condition aggravated [Fatal]
  - Neoplasm malignant [Fatal]

NARRATIVE: CASE EVENT DATE: 20190120
